FAERS Safety Report 20607610 (Version 2)
Quarter: 2022Q2

REPORT INFORMATION
  Report Type: Report from Study
  Country: CA (occurrence: CA)
  Receive Date: 20220317
  Receipt Date: 20220408
  Transmission Date: 20220720
  Serious: Yes (Death, Hospitalization, Other)
  Sender: FDA-Public Use
  Company Number: CA-ABBVIE-22K-028-4320526-00

PATIENT
  Age: 85 Year
  Sex: Male
  Weight: 85 kg

DRUGS (7)
  1. VENCLEXTA [Suspect]
     Active Substance: VENETOCLAX
     Indication: Chronic lymphocytic leukaemia
     Route: 048
     Dates: start: 20190816
  2. IMBRUVICA [Concomitant]
     Active Substance: IBRUTINIB
     Indication: Product used for unknown indication
     Route: 048
     Dates: start: 20160126, end: 2016
  3. IMBRUVICA [Concomitant]
     Active Substance: IBRUTINIB
     Route: 048
     Dates: start: 20160810
  4. APIXABAN [Concomitant]
     Active Substance: APIXABAN
     Indication: Deep vein thrombosis
     Route: 048
     Dates: end: 20211212
  5. PENTOLAC [Concomitant]
     Indication: Gastrooesophageal reflux disease
     Route: 048
     Dates: end: 20211212
  6. VALACYCLOVIR [Concomitant]
     Active Substance: VALACYCLOVIR HYDROCHLORIDE
     Indication: Prophylaxis
     Route: 048
     Dates: end: 20211212
  7. BISOPROLOL [Concomitant]
     Active Substance: BISOPROLOL
     Indication: Arrhythmia
     Route: 048
     Dates: end: 20211212

REACTIONS (9)
  - Escherichia sepsis [Fatal]
  - Hip arthroplasty [Unknown]
  - Agranulocytosis [Unknown]
  - Cellulitis [Unknown]
  - Retroperitoneal lymphadenopathy [Unknown]
  - Abdominal lymphadenopathy [Recovering/Resolving]
  - Abdominal lymphadenopathy [Not Recovered/Not Resolved]
  - Peripheral swelling [Unknown]
  - Retroperitoneal lymphadenopathy [Recovering/Resolving]

NARRATIVE: CASE EVENT DATE: 20211214
